FAERS Safety Report 7180200-0 (Version None)
Quarter: 2010Q4

REPORT INFORMATION
  Report Type: 
  Country: None (occurrence: None)
  Receive Date: 20101209
  Receipt Date: 20101124
  Transmission Date: 20110411
  Serious: Yes (Other)
  Sender: FDA-Public Use
  Company Number: ACO_20570_2010

PATIENT
  Age: 44 Year
  Sex: Male

DRUGS (4)
  1. AMPYRA [Suspect]
     Indication: MUSCULAR WEAKNESS
     Dates: start: 20100501, end: 20100604
  2. TYSABRI [Concomitant]
  3. ATENOLOL [Concomitant]
  4. BACLOFEN [Concomitant]

REACTIONS (5)
  - CONVULSION [None]
  - CYSTITIS [None]
  - LOSS OF CONSCIOUSNESS [None]
  - OFF LABEL USE [None]
  - SYNCOPE [None]
